FAERS Safety Report 20607894 (Version 2)
Quarter: 2022Q2

REPORT INFORMATION
  Report Type: Spontaneous
  Country: US (occurrence: US)
  Receive Date: 20220317
  Receipt Date: 20220412
  Transmission Date: 20220721
  Serious: No
  Sender: FDA-Public Use
  Company Number: US-PFIZER INC-202101442834

PATIENT
  Age: 81 Year
  Sex: Female

DRUGS (2)
  1. EUCRISA [Suspect]
     Active Substance: CRISABOROLE
     Dosage: QD TO ARMS, LEGS, BACK
  2. EUCRISA [Suspect]
     Active Substance: CRISABOROLE
     Dosage: ARMS AND LEGS 2 MORNING AND NIGHT

REACTIONS (5)
  - Eczema [Unknown]
  - Burning sensation [Unknown]
  - Somnolence [Unknown]
  - Restlessness [Unknown]
  - Off label use [Unknown]
